FAERS Safety Report 9656726 (Version 1)
Quarter: 2013Q4

REPORT INFORMATION
  Report Type: Spontaneous
  Country: US (occurrence: US)
  Receive Date: 20131030
  Receipt Date: 20131030
  Transmission Date: 20140711
  Serious: Yes (Other)
  Sender: FDA-Public Use
  Company Number: US-BAYER-2013-132064

PATIENT
  Sex: Female

DRUGS (1)
  1. BAYER ASPIRIN REGIMEN ADULT LOW STRENGTH [Suspect]
     Dosage: UNK UNK, QD

REACTIONS (1)
  - Ulcer [None]
